FAERS Safety Report 14810823 (Version 2)
Quarter: 2018Q3

REPORT INFORMATION
  Report Type: Report from Study
  Country: US (occurrence: US)
  Receive Date: 20180425
  Receipt Date: 20180719
  Transmission Date: 20181010
  Serious: No
  Sender: FDA-Public Use
  Company Number: US-AMGEN-USASL2018034869

PATIENT
  Sex: Female

DRUGS (1)
  1. REPATHA [Suspect]
     Active Substance: EVOLOCUMAB
     Indication: BLOOD CHOLESTEROL ABNORMAL
     Dosage: 140 MG, Q2WK
     Route: 065

REACTIONS (8)
  - Dizziness [Unknown]
  - Dry skin [Unknown]
  - Palpitations [Unknown]
  - Injection site rash [Unknown]
  - Asthenia [Unknown]
  - Injection site mass [Unknown]
  - Injection site pruritus [Unknown]
  - Medical device site erythema [Unknown]
